FAERS Safety Report 4307205-9 (Version None)
Quarter: 2004Q1

REPORT INFORMATION
  Report Type: 
  Country: None (occurrence: None)
  Receive Date: 20040225
  Receipt Date: 20040219
  Transmission Date: 20041129
  Serious: Yes (Death, Disabling)
  Sender: FDA-Public Use
  Company Number: 2004195924JP

PATIENT
  Age: 76 Year
  Sex: Male

DRUGS (10)
  1. CAMPTOSAR [Suspect]
     Indication: SMALL CELL LUNG CANCER STAGE UNSPECIFIED
     Dosage: 90 MG, CYCLIC IV DRIP
     Route: 041
     Dates: start: 20030819, end: 20031002
  2. CALSED (AMRUBICIN HYDROCHLORIDE) [Suspect]
     Indication: SMALL CELL LUNG CANCER STAGE UNSPECIFIED
     Dosage: 62 MG IV
     Route: 042
     Dates: start: 20031204, end: 20031206
  3. HANGE-SHASHIN- TO [Suspect]
     Indication: DIARRHOEA
     Dosage: 7.5 MG ORAL
     Route: 048
     Dates: start: 20030917, end: 20031128
  4. BRIPLATIN [Concomitant]
  5. HALCION [Concomitant]
  6. NEURONTIN [Concomitant]
  7. MS CONTIN [Concomitant]
  8. LOXONIN [Concomitant]
  9. VEPESID [Concomitant]
  10. MARUYAMA VACCINE (TUBERCULIN) [Concomitant]

REACTIONS (7)
  - CHEYNE-STOKES RESPIRATION [None]
  - COMA [None]
  - DEPRESSED LEVEL OF CONSCIOUSNESS [None]
  - DISEASE PROGRESSION [None]
  - INTERSTITIAL LUNG DISEASE [None]
  - RESPIRATORY FAILURE [None]
  - SMALL CELL LUNG CANCER STAGE UNSPECIFIED [None]
